FAERS Safety Report 4727647-7 (Version None)
Quarter: 2005Q3

REPORT INFORMATION
  Report Type: 
  Country: None (occurrence: None)
  Receive Date: 20050727
  Receipt Date: 20050727
  Transmission Date: 20060218
  Serious: Yes (Other)
  Sender: FDA-Public Use
  Company Number: None

PATIENT
  Age: 40 Year
  Sex: Female
  Weight: 45.3597 kg

DRUGS (2)
  1. MISOPROSTOL [Suspect]
     Indication: CERVIX DISORDER
     Dosage: MISOPROSTOL VAGINAL
     Route: 067
     Dates: start: 20050725, end: 20050726
  2. MISOPROSTOL [Suspect]
     Indication: THROMBOSIS
     Dosage: MISOPROSTOL VAGINAL
     Route: 067
     Dates: start: 20050725, end: 20050726

REACTIONS (6)
  - ACCIDENTAL OVERDOSE [None]
  - DIZZINESS [None]
  - DYSMENORRHOEA [None]
  - HAEMORRHAGE [None]
  - NAUSEA [None]
  - PAIN [None]
